FAERS Safety Report 8606278-2 (Version None)
Quarter: 2012Q3

REPORT INFORMATION
  Report Type: 
  Country: None (occurrence: None)
  Receive Date: 20120820
  Receipt Date: 20120810
  Transmission Date: 20120928
  Serious: Yes (Other)
  Sender: FDA-Public Use
  Company Number: HU-ASTRAZENECA-2012SE56247

PATIENT
  Age: 78 Year
  Sex: Female

DRUGS (12)
  1. XANAX [Concomitant]
  2. KALIUM [Concomitant]
  3. BERODUAL [Concomitant]
  4. NITRO-DUR [Concomitant]
  5. FUROSEMIDE [Concomitant]
  6. SYNCUMAR [Concomitant]
  7. ALLOPURINOL [Concomitant]
  8. LENDORMIN [Concomitant]
  9. VIMOVO [Suspect]
     Indication: ARTHRALGIA
     Dosage: 500MG/20MG TWICE A DAY
     Route: 048
  10. ADEXOR [Concomitant]
     Route: 048
  11. SERTADEL [Concomitant]
  12. THEOSPIREX [Concomitant]

REACTIONS (2)
  - DYSGEUSIA [None]
  - DRY MOUTH [None]
